FAERS Safety Report 8532050-8 (Version None)
Quarter: 2012Q3

REPORT INFORMATION
  Report Type: 
  Country: None (occurrence: None)
  Receive Date: 20120723
  Receipt Date: 20120716
  Transmission Date: 20120928
  Serious: Yes (Other)
  Sender: FDA-Public Use
  Company Number: US-GLAXOSMITHKLINE-A0984591A

PATIENT
  Sex: Female

DRUGS (4)
  1. GENERIC MEDICATION [Concomitant]
  2. BLOOD PRESSURE MEDICATION [Concomitant]
  3. ADVAIR DISKUS 100/50 [Suspect]
     Indication: CHRONIC OBSTRUCTIVE PULMONARY DISEASE
     Dosage: 1PUFF TWICE PER DAY
     Route: 055
     Dates: start: 20100101
  4. ANTI-CHOLESTEROL MEDICATION [Concomitant]

REACTIONS (4)
  - NECROTISING ULCERATIVE GINGIVOSTOMATITIS [None]
  - DYSPHONIA [None]
  - APHONIA [None]
  - DRY THROAT [None]
